FAERS Safety Report 22975594 (Version 3)
Quarter: 2023Q4

REPORT INFORMATION
  Report Type: Spontaneous
  Country: US (occurrence: US)
  Receive Date: 20230925
  Receipt Date: 20231120
  Transmission Date: 20240109
  Serious: No
  Sender: FDA-Public Use
  Company Number: US-SA-SAC20230915001171

PATIENT
  Sex: Female

DRUGS (1)
  1. DUPIXENT [Suspect]
     Active Substance: DUPILUMAB
     Indication: Dermatitis atopic
     Dosage: 300 MG, QOW
     Route: 058

REACTIONS (6)
  - Scratch [Unknown]
  - Skin haemorrhage [Recovering/Resolving]
  - Rash pruritic [Recovered/Resolved]
  - Pruritus [Recovering/Resolving]
  - Injection site bruising [Unknown]
  - Dermatitis atopic [Recovering/Resolving]
